FAERS Safety Report 5448594-1 (Version None)
Quarter: 2007Q3

REPORT INFORMATION
  Report Type: 
  Country: None (occurrence: None)
  Receive Date: 20070911
  Receipt Date: 20070906
  Transmission Date: 20080115
  Serious: Yes (Other)
  Sender: FDA-Public Use
  Company Number: HQWYE051806SEP07

PATIENT
  Sex: Male

DRUGS (1)
  1. CORDAREX [Suspect]
     Indication: ATRIAL FIBRILLATION
     Dosage: A ONE TIME DOSE OF 50 MG
     Route: 042
     Dates: start: 20070801, end: 20070801

REACTIONS (4)
  - BLOOD PRESSURE DECREASED [None]
  - BRADYCARDIA [None]
  - LOSS OF CONSCIOUSNESS [None]
  - PHARMACEUTICAL PRODUCT COMPLAINT [None]
